FAERS Safety Report 13933101 (Version 1)
Quarter: 2017Q3

REPORT INFORMATION
  Report Type: Spontaneous
  Country: DE (occurrence: DE)
  Receive Date: 20170904
  Receipt Date: 20170904
  Transmission Date: 20171127
  Serious: Yes (Other)
  Sender: FDA-Public Use
  Company Number: DE-PFIZER INC-2017372711

PATIENT
  Sex: Female
  Weight: 2.58 kg

DRUGS (2)
  1. VENLAFAXINE HCL [Suspect]
     Active Substance: VENLAFAXINE HYDROCHLORIDE
     Dosage: UNK
     Route: 063
     Dates: start: 2017, end: 2017
  2. VENLAFAXINE HCL [Suspect]
     Active Substance: VENLAFAXINE HYDROCHLORIDE
     Indication: DEPRESSION
     Dosage: 75 MG, 1X/DAY, 0. - 34.6. GESTATIONAL WEEK
     Route: 064
     Dates: start: 20160727, end: 20170328

REACTIONS (6)
  - Hyperreflexia [Recovered/Resolved]
  - Premature baby [Recovered/Resolved]
  - Exposure during breast feeding [Recovered/Resolved]
  - Myoclonus [Recovered/Resolved]
  - Maternal exposure during pregnancy [Recovered/Resolved]
  - Restlessness [Recovered/Resolved]
